FAERS Safety Report 5801471-6 (Version None)
Quarter: 2008Q3

REPORT INFORMATION
  Report Type: 
  Country: None (occurrence: None)
  Receive Date: 20080707
  Receipt Date: 20080626
  Transmission Date: 20090109
  Serious: Yes (Other)
  Sender: FDA-Public Use
  Company Number: GB-TEVA-173611ISR

PATIENT
  Age: 30 Year
  Sex: Male

DRUGS (1)
  1. CARBAMAZEPINE [Suspect]
     Indication: EPILEPSY
     Dates: start: 19980101

REACTIONS (1)
  - INFERTILITY MALE [None]
